FAERS Safety Report 4677296-4 (Version None)
Quarter: 2005Q2

REPORT INFORMATION
  Report Type: 
  Country: None (occurrence: None)
  Receive Date: 20050526
  Receipt Date: 20050516
  Transmission Date: 20051028
  Serious: Yes (Death)
  Sender: FDA-Public Use
  Company Number: MK200505-0193-1

PATIENT
  Age: 54 Year
  Sex: Female
  Weight: 26.7622 kg

DRUGS (2)
  1. MORPHINE SULFATE [Suspect]
     Indication: PAIN
     Dosage: 2.5 MG (TOTAL), PCEA
  2. MORPHINE SULFATE [Suspect]
     Indication: PAIN
     Dosage: 15 MG (TOTAL), PCEA

REACTIONS (17)
  - APALLIC SYNDROME [None]
  - AREFLEXIA [None]
  - BLOOD PRESSURE ABNORMAL [None]
  - BRAIN STEM SYNDROME [None]
  - CARDIAC ARREST [None]
  - CHOKING [None]
  - DIZZINESS [None]
  - GLASGOW COMA SCALE ABNORMAL [None]
  - LETHARGY [None]
  - LOSS OF CONSCIOUSNESS [None]
  - MYDRIASIS [None]
  - NAUSEA [None]
  - POST PROCEDURAL COMPLICATION [None]
  - PUPILLARY REFLEX IMPAIRED [None]
  - RESPIRATORY ARREST [None]
  - SEDATION [None]
  - SINUS BRADYCARDIA [None]
